FAERS Safety Report 16164736 (Version 1)
Quarter: 2019Q2

REPORT INFORMATION
  Report Type: Spontaneous
  Country: AU (occurrence: AU)
  Receive Date: 20190405
  Receipt Date: 20190405
  Transmission Date: 20190711
  Serious: Yes (Hospitalization, Other)
  Sender: FDA-Public Use
  Company Number: AU-ENDO PHARMACEUTICALS INC-2019-103482

PATIENT
  Age: 66 Year
  Sex: Male

DRUGS (1)
  1. AVEED [Suspect]
     Active Substance: TESTOSTERONE UNDECANOATE
     Indication: BLOOD TESTOSTERONE DECREASED
     Dosage: 1 DF, ONCE EVERY 10WK
     Route: 065

REACTIONS (4)
  - Injection site pain [Not Recovered/Not Resolved]
  - Portal vein thrombosis [Unknown]
  - Prostatomegaly [Unknown]
  - Injection site reaction [Not Recovered/Not Resolved]

NARRATIVE: CASE EVENT DATE: 2017
